FAERS Safety Report 5640287-0 (Version None)
Quarter: 2008Q1

REPORT INFORMATION
  Report Type: 
  Country: None (occurrence: None)
  Receive Date: 20080227
  Receipt Date: 20080219
  Transmission Date: 20080703
  Serious: No
  Sender: FDA-Public Use
  Company Number: US-BAXTER-2008BH001310

PATIENT
  Age: 45 Year
  Sex: Female
  Weight: 56 kg

DRUGS (7)
  1. HEPARIN SODIUM [Suspect]
     Indication: PERIPHERAL EMBOLISM
     Dosage: DOSE UNIT:UNKNOWN
     Route: 042
     Dates: start: 20080118, end: 20080123
  2. HEPARIN [Suspect]
     Indication: PERIPHERAL EMBOLISM
     Dosage: DOSE UNIT:UNKNOWN
     Route: 042
     Dates: start: 20080118, end: 20080123
  3. ADVAIR DISKUS 100/50 [Concomitant]
     Indication: ASTHMA
     Route: 055
  4. CALCIUM [Concomitant]
     Indication: DRUG USE FOR UNKNOWN INDICATION
     Dosage: DOSE UNIT:UNKNOWN
     Route: 048
  5. ASPIRIN [Concomitant]
     Indication: DRUG USE FOR UNKNOWN INDICATION
     Dosage: DOSE UNIT:UNKNOWN
     Route: 048
  6. TAMOXIFEN [Concomitant]
     Indication: FAMILIAL RISK FACTOR
     Dosage: DOSE UNIT:UNKNOWN
     Route: 048
  7. COUMADIN [Concomitant]
     Indication: PERIPHERAL EMBOLISM
     Route: 048
     Dates: start: 20080123

REACTIONS (10)
  - ABDOMINAL PAIN [None]
  - ASTHENIA [None]
  - BLOOD PRESSURE DECREASED [None]
  - DIARRHOEA [None]
  - HEADACHE [None]
  - HYPERHIDROSIS [None]
  - LOSS OF CONSCIOUSNESS [None]
  - NAUSEA [None]
  - TREMOR [None]
  - VOMITING [None]
